FAERS Safety Report 26100222 (Version 1)
Quarter: 2025Q4

REPORT INFORMATION
  Report Type: Spontaneous
  Country: US (occurrence: US)
  Receive Date: 20251128
  Receipt Date: 20251128
  Transmission Date: 20260117
  Serious: Yes (Other)
  Sender: ROCHE
  Company Number: US-ROCHE-10000443378

PATIENT
  Age: 62 Year
  Sex: Male

DRUGS (7)
  1. RITUXIMAB [Suspect]
     Active Substance: RITUXIMAB
     Indication: Immunosuppressant drug therapy
     Route: 065
  2. MYCOPHENOLATE MOFETIL [Suspect]
     Active Substance: MYCOPHENOLATE MOFETIL
     Indication: Immunosuppressant drug therapy
     Route: 048
  3. TEGOPRUBART [Suspect]
     Active Substance: TEGOPRUBART
     Indication: Immunosuppressant drug therapy
     Route: 065
  4. RAVULIZUMAB [Suspect]
     Active Substance: RAVULIZUMAB
     Indication: Immunosuppressant drug therapy
     Route: 065
  5. TACROLIMUS [Suspect]
     Active Substance: TACROLIMUS
     Indication: Immunosuppressant drug therapy
     Route: 065
  6. SULFAMETHOXAZOLE\TRIMETHOPRIM [Concomitant]
     Active Substance: SULFAMETHOXAZOLE\TRIMETHOPRIM
  7. VALGANCICLOVIR [Concomitant]
     Active Substance: VALGANCICLOVIR

REACTIONS (3)
  - Staphylococcal infection [Unknown]
  - Pseudomonas infection [Unknown]
  - Enterococcal infection [Unknown]
